FAERS Safety Report 22111404 (Version 2)
Quarter: 2023Q1

REPORT INFORMATION
  Report Type: Spontaneous
  Country: AT (occurrence: AT)
  Receive Date: 20230317
  Receipt Date: 20230324
  Transmission Date: 20230418
  Serious: No
  Sender: FDA-Public Use
  Company Number: AT-GILEAD-2023-0620574

PATIENT
  Age: 42 Year
  Sex: Female

DRUGS (3)
  1. TRODELVY [Suspect]
     Active Substance: SACITUZUMAB GOVITECAN-HZIY
     Indication: Product used for unknown indication
     Route: 065
  2. PACLITAXEL [Concomitant]
     Active Substance: PACLITAXEL
     Route: 065
  3. CLINDAMYCIN HYDROCHLORIDE [Concomitant]
     Active Substance: CLINDAMYCIN HYDROCHLORIDE

REACTIONS (7)
  - Alopecia [Unknown]
  - Diarrhoea [Unknown]
  - Pharyngitis [Unknown]
  - Oral herpes [Unknown]
  - Herpes virus infection [Unknown]
  - Sinusitis [Unknown]
  - Vaginal discharge [Unknown]
